FAERS Safety Report 10760848 (Version 1)
Quarter: 2015Q1

REPORT INFORMATION
  Report Type: Spontaneous
  Country: IN (occurrence: None)
  Receive Date: 20150202
  Receipt Date: 20150202
  Transmission Date: 20150721
  Serious: Yes (Other)
  Sender: FDA-Public Use
  Company Number: 1545972

PATIENT
  Age: 19 Year
  Sex: Male

DRUGS (1)
  1. PHENYTOIN SODIUM. [Suspect]
     Active Substance: PHENYTOIN SODIUM
     Indication: SEIZURE
     Dosage: 300MG PO QD THEN 500 MG PO QD (16YRS AT 300MG THEN 1MO AT 500)

REACTIONS (10)
  - Gait disturbance [None]
  - Coordination abnormal [None]
  - Dysarthria [None]
  - Ataxia [None]
  - Cerebellar syndrome [None]
  - Anticonvulsant drug level increased [None]
  - Opsoclonus myoclonus [None]
  - Toxicity to various agents [None]
  - Gingival hypertrophy [None]
  - Dizziness [None]
